FAERS Safety Report 14656532 (Version 3)
Quarter: 2018Q3

REPORT INFORMATION
  Report Type: Spontaneous
  Country: CA (occurrence: CA)
  Receive Date: 20180319
  Receipt Date: 20180801
  Transmission Date: 20181010
  Serious: Yes (Hospitalization, Other)
  Sender: FDA-Public Use
  Company Number: CA-PFIZER INC-2018099920

PATIENT
  Age: 53 Year
  Sex: Male

DRUGS (9)
  1. WARFARIN [Concomitant]
     Active Substance: WARFARIN
     Dosage: UNK
  2. FUROSEMIDE. [Concomitant]
     Active Substance: FUROSEMIDE
     Dosage: UNK
  3. FERROUS GLUCONATE [Concomitant]
     Active Substance: FERROUS GLUCONATE
     Dosage: UNK
  4. POTASSIUM CHLORIDE. [Concomitant]
     Active Substance: POTASSIUM CHLORIDE
     Dosage: UNK
  5. REVATIO [Suspect]
     Active Substance: SILDENAFIL CITRATE
     Indication: PULMONARY ARTERIAL HYPERTENSION
     Dosage: 20 MG, 3X/DAY
     Route: 048
     Dates: start: 20170509
  6. METOLAZONE. [Concomitant]
     Active Substance: METOLAZONE
     Dosage: UNK
  7. TRACLEER [Concomitant]
     Active Substance: BOSENTAN
     Dosage: UNK
  8. POTASSIUM CHLORIDE. [Concomitant]
     Active Substance: POTASSIUM CHLORIDE
     Dosage: UNK
  9. DIGOXIN. [Concomitant]
     Active Substance: DIGOXIN
     Dosage: UNK

REACTIONS (4)
  - Pneumonia [Not Recovered/Not Resolved]
  - Internal haemorrhage [Not Recovered/Not Resolved]
  - Cushingoid [Not Recovered/Not Resolved]
  - Dyspnoea [Not Recovered/Not Resolved]

NARRATIVE: CASE EVENT DATE: 20180716
